FAERS Safety Report 24679344 (Version 1)
Quarter: 2024Q4

REPORT INFORMATION
  Report Type: Spontaneous
  Country: CN (occurrence: CN)
  Receive Date: 20241129
  Receipt Date: 20241129
  Transmission Date: 20250115
  Serious: Yes (Other)
  Sender: ROCHE
  Company Number: CN-BoehringerIngelheim-2024-BI-065663

PATIENT
  Age: 90 Year
  Sex: Female
  Weight: 70.0 kg

DRUGS (2)
  1. ALTEPLASE [Suspect]
     Active Substance: ALTEPLASE
     Indication: Cerebral infarction
     Route: 042
     Dates: start: 20241121, end: 20241121
  2. ALTEPLASE [Suspect]
     Active Substance: ALTEPLASE
     Route: 042
     Dates: start: 20241121, end: 20241121

REACTIONS (4)
  - Cerebral haemorrhage [Unknown]
  - Upper gastrointestinal haemorrhage [Unknown]
  - Mouth haemorrhage [Unknown]
  - Coma [Unknown]

NARRATIVE: CASE EVENT DATE: 20241121
